FAERS Safety Report 5169411-3 (Version None)
Quarter: 2006Q4

REPORT INFORMATION
  Report Type: 
  Country: None (occurrence: None)
  Receive Date: 20061201
  Receipt Date: 20061115
  Transmission Date: 20070319
  Serious: Yes (Life-Threatening)
  Sender: FDA-Public Use
  Company Number: 232998

PATIENT
  Age: 54 Year
  Sex: Female
  Weight: 82.9 kg

DRUGS (1)
  1. HERCEPTIN [Suspect]
     Indication: DRUG USE FOR UNKNOWN INDICATION
     Dosage: INTRAVENOUS
     Route: 042
     Dates: start: 20060418, end: 20061003

REACTIONS (2)
  - BRADYCARDIA [None]
  - EJECTION FRACTION DECREASED [None]
